FAERS Safety Report 8987491 (Version 2)
Quarter: 2013Q1

REPORT INFORMATION
  Report Type: Spontaneous
  Country: US (occurrence: US)
  Receive Date: 20121227
  Receipt Date: 20130111
  Transmission Date: 20140127
  Serious: No
  Sender: FDA-Public Use
  Company Number: US-PFIZER INC-2012325107

PATIENT
  Age: 54 Year
  Sex: Male

DRUGS (6)
  1. SUTENT [Suspect]
     Indication: RENAL CANCER
     Dosage: 50 MG, UNK
     Dates: start: 20121206
  2. METFORMIN HYDROCHLORIDE [Concomitant]
  3. TEMAZEPAM [Concomitant]
  4. ALPRAZOLAM [Concomitant]
  5. VICODIN [Concomitant]
  6. TUSSIONEX PENNKINETIC [Concomitant]

REACTIONS (2)
  - Cough [Unknown]
  - Surgery [Unknown]
